FAERS Safety Report 4742002-1 (Version None)
Quarter: 2005Q3

REPORT INFORMATION
  Report Type: 
  Country: None (occurrence: None)
  Receive Date: 20050801
  Receipt Date: 20040811
  Transmission Date: 20060218
  Serious: Yes (Other)
  Sender: FDA-Public Use
  Company Number: 208394

PATIENT
  Age: 53 Year
  Sex: Male

DRUGS (6)
  1. RITUXAN [Suspect]
     Indication: B-CELL LYMPHOMA
     Dosage: 600 MG, INTRAVENOUS
     Route: 042
     Dates: start: 20040810, end: 20040811
  2. DEMEROL [Concomitant]
  3. HYDROCORTISONE [Concomitant]
  4. OXYGEN [Concomitant]
  5. BENADRYL [Concomitant]
  6. TYLENOL [Concomitant]

REACTIONS (1)
  - PANCYTOPENIA [None]
